FAERS Safety Report 19322811 (Version 1)
Quarter: 2021Q2

REPORT INFORMATION
  Report Type: Report from Study
  Country: CN (occurrence: CN)
  Receive Date: 20210528
  Receipt Date: 20210528
  Transmission Date: 20210717
  Serious: Yes (Other)
  Sender: FDA-Public Use
  Company Number: CN-BAXTER-2021BAX013209

PATIENT
  Sex: Male

DRUGS (1)
  1. PERITONEAL DIALYSIS SOLUTION (LACTATE? G1.5%) [Suspect]
     Active Substance: CALCIUM CHLORIDE\DEXTROSE\MAGNESIUM CHLORIDE\SODIUM CHLORIDE\SODIUM LACTATE
     Indication: END STAGE RENAL DISEASE
     Dosage: 4 BAGS PER DAY
     Route: 033
     Dates: start: 20160729

REACTIONS (2)
  - Infection [Recovered/Resolved]
  - Peritoneal dialysis complication [Recovered/Resolved]

NARRATIVE: CASE EVENT DATE: 2021
